FAERS Safety Report 25706527 (Version 1)
Quarter: 2025Q3

REPORT INFORMATION
  Report Type: Spontaneous
  Country: US (occurrence: US)
  Receive Date: 20250820
  Receipt Date: 20250820
  Transmission Date: 20251021
  Serious: No
  Sender: CATALYST PHARMA
  Company Number: US-CATALYST PHARMACEUTICALS-US-CATA-25-00848

PATIENT
  Sex: Male
  Weight: 29.66 kg

DRUGS (5)
  1. AGAMREE [Suspect]
     Active Substance: VAMOROLONE
     Indication: Duchenne muscular dystrophy
     Dosage: 1.5 ML ONCE A DAY
     Route: 048
     Dates: start: 20250425
  2. SUPER CALCIUM 600 VITAMIN D3 400 [Concomitant]
     Indication: Hypovitaminosis
     Dosage: TABLET ONCE A DAY
     Route: 065
  3. MAGNESIUM GLYCINATE [Concomitant]
     Active Substance: MAGNESIUM GLYCINATE
     Indication: Hypovitaminosis
     Dosage: 420 MG ONCE A DAY
     Route: 065
  4. ENALAPRIL [Concomitant]
     Active Substance: ENALAPRIL
     Indication: Cardiovascular event prophylaxis
     Dosage: 5 MG TWICE A DAY
     Route: 065
  5. DUVYZAT [Concomitant]
     Active Substance: GIVINOSTAT
     Indication: Duchenne muscular dystrophy
     Dosage: 3.5 ML TWICE A DAY
     Route: 065

REACTIONS (7)
  - Anger [Recovering/Resolving]
  - Crying [Not Recovered/Not Resolved]
  - Increased appetite [Not Recovered/Not Resolved]
  - Mood swings [Recovering/Resolving]
  - Agitation [Recovering/Resolving]
  - Emotional disorder [Recovering/Resolving]
  - Depressed mood [Not Recovered/Not Resolved]

NARRATIVE: CASE EVENT DATE: 20250101
